FAERS Safety Report 6930228-8 (Version None)
Quarter: 2010Q3

REPORT INFORMATION
  Report Type: 
  Country: None (occurrence: None)
  Receive Date: 20100817
  Receipt Date: 20100817
  Transmission Date: 20110219
  Serious: Yes (Other)
  Sender: FDA-Public Use
  Company Number: None

PATIENT
  Age: 69 Year
  Sex: Female
  Weight: 81.6475 kg

DRUGS (2)
  1. LISINOPRIL 20MG LUPRIN PHARMACEUTICALS [Suspect]
     Indication: BLOOD PRESSURE
     Dosage: 1 DAY 20MG
     Dates: start: 20091216
  2. LISINOPRIL [Suspect]
     Indication: BLOOD PRESSURE
     Dosage: 1 DAY 20MG
     Dates: start: 20090101, end: 20100401

REACTIONS (4)
  - COUGH [None]
  - LYMPHADENOPATHY [None]
  - OROPHARYNGEAL PAIN [None]
  - SWOLLEN TONGUE [None]
